FAERS Safety Report 19752386 (Version 9)
Quarter: 2022Q2

REPORT INFORMATION
  Report Type: Spontaneous
  Country: US (occurrence: US)
  Receive Date: 20210827
  Receipt Date: 20220610
  Transmission Date: 20220721
  Serious: Yes (Hospitalization, Other)
  Sender: FDA-Public Use
  Company Number: US-GLAXOSMITHKLINE-US2021AMR179403

PATIENT

DRUGS (2)
  1. ZEJULA [Suspect]
     Active Substance: NIRAPARIB
     Indication: Ovarian cancer
     Dosage: 200 MG, QD
     Route: 048
     Dates: start: 20210809, end: 20211220
  2. ZEJULA [Suspect]
     Active Substance: NIRAPARIB
     Dosage: 200 MG, QD
     Route: 048
     Dates: start: 20220214

REACTIONS (16)
  - Hernia repair [Unknown]
  - Nephrotic syndrome [Unknown]
  - Nausea [Unknown]
  - Hypertension [Unknown]
  - Abdominal discomfort [Not Recovered/Not Resolved]
  - Decreased appetite [Unknown]
  - Condition aggravated [Unknown]
  - Tenderness [Unknown]
  - Pain [Unknown]
  - Dry eye [Unknown]
  - Dry mouth [Not Recovered/Not Resolved]
  - Headache [Unknown]
  - Skin papilloma [Unknown]
  - Malaise [Unknown]
  - Weight decreased [Unknown]
  - Product dose omission issue [Unknown]

NARRATIVE: CASE EVENT DATE: 20210801
